FAERS Safety Report 9625629 (Version 2)
Quarter: 2013Q4

REPORT INFORMATION
  Report Type: Spontaneous
  Country: US (occurrence: US)
  Receive Date: 20131016
  Receipt Date: 20131028
  Transmission Date: 20140711
  Serious: Yes (Other)
  Sender: FDA-Public Use
  Company Number: US-JNJFOC-20131004013

PATIENT
  Age: 84 Year
  Sex: Male
  Weight: 104 kg

DRUGS (30)
  1. SPECTAZOLE [Suspect]
     Indication: PSORIASIS
     Dosage: PRETREATMENT WARFARIN RANGED FROM 37.5 MG TO 42.5 MG PER WEEK
     Route: 061
     Dates: start: 19991001, end: 20000214
  2. SPECTAZOLE [Suspect]
     Indication: CANDIDA INFECTION
     Dosage: PRETREATMENT WARFARIN RANGED FROM 37.5 MG TO 42.5 MG PER WEEK
     Route: 061
     Dates: start: 19991001, end: 20000214
  3. WARFARIN [Interacting]
     Indication: CEREBROVASCULAR ACCIDENT
     Route: 065
     Dates: start: 20000405
  4. WARFARIN [Interacting]
     Indication: CEREBROVASCULAR ACCIDENT
     Route: 065
     Dates: start: 20000322
  5. WARFARIN [Interacting]
     Indication: CEREBROVASCULAR ACCIDENT
     Route: 065
     Dates: start: 20000301
  6. WARFARIN [Interacting]
     Indication: CEREBROVASCULAR ACCIDENT
     Route: 065
     Dates: start: 20000215
  7. WARFARIN [Interacting]
     Indication: CEREBROVASCULAR ACCIDENT
     Route: 065
     Dates: start: 20000208
  8. WARFARIN [Interacting]
     Indication: CEREBROVASCULAR ACCIDENT
     Route: 065
     Dates: start: 20000131
  9. WARFARIN [Interacting]
     Indication: CEREBROVASCULAR ACCIDENT
     Route: 065
     Dates: start: 20000117
  10. WARFARIN [Interacting]
     Indication: CEREBROVASCULAR ACCIDENT
     Route: 065
     Dates: start: 20000103
  11. WARFARIN [Interacting]
     Indication: CEREBROVASCULAR ACCIDENT
     Route: 065
     Dates: start: 20000412
  12. WARFARIN [Interacting]
     Indication: CEREBROVASCULAR ACCIDENT
     Route: 065
     Dates: start: 20000517
  13. WARFARIN [Interacting]
     Indication: CEREBROVASCULAR ACCIDENT
     Route: 065
     Dates: start: 20000531
  14. WARFARIN [Interacting]
     Indication: CEREBROVASCULAR ACCIDENT
     Route: 065
     Dates: start: 19991227
  15. WARFARIN [Interacting]
     Indication: CEREBROVASCULAR ACCIDENT
     Dosage: 37.5 MG TO 42.5 MG PER WEEK
     Route: 065
     Dates: start: 19990907
  16. WARFARIN [Interacting]
     Indication: CEREBROVASCULAR ACCIDENT
     Route: 065
     Dates: start: 19990921
  17. WARFARIN [Interacting]
     Indication: CEREBROVASCULAR ACCIDENT
     Route: 065
     Dates: start: 19991129
  18. WARFARIN [Interacting]
     Indication: CEREBROVASCULAR ACCIDENT
     Route: 065
     Dates: start: 19991124
  19. WARFARIN [Interacting]
     Indication: CEREBROVASCULAR ACCIDENT
     Route: 065
     Dates: start: 19991115
  20. WARFARIN [Interacting]
     Indication: CEREBROVASCULAR ACCIDENT
     Route: 065
     Dates: start: 19991108
  21. WARFARIN [Interacting]
     Indication: CEREBROVASCULAR ACCIDENT
     Route: 065
     Dates: start: 19991101
  22. WARFARIN [Interacting]
     Indication: CEREBROVASCULAR ACCIDENT
     Route: 065
     Dates: start: 19991027
  23. WARFARIN [Interacting]
     Indication: CEREBROVASCULAR ACCIDENT
     Route: 065
     Dates: start: 19991025
  24. WARFARIN [Interacting]
     Indication: CEREBROVASCULAR ACCIDENT
     Route: 065
     Dates: start: 19991021
  25. WARFARIN [Interacting]
     Indication: CEREBROVASCULAR ACCIDENT
     Route: 065
     Dates: start: 19991019
  26. WARFARIN [Interacting]
     Indication: CEREBROVASCULAR ACCIDENT
     Route: 065
     Dates: start: 19991005
  27. DICLOXACILLIN [Interacting]
     Indication: STAPHYLOCOCCAL INFECTION
     Route: 061
  28. DICLOXACILLIN [Interacting]
     Indication: PSORIASIS
     Route: 061
  29. DICLOXACILLIN [Interacting]
     Indication: CANDIDA INFECTION
     Route: 061
  30. MACRODANTIN [Concomitant]
     Indication: URINARY TRACT INFECTION
     Route: 065

REACTIONS (2)
  - International normalised ratio increased [Recovering/Resolving]
  - Drug interaction [Recovering/Resolving]
